FAERS Safety Report 5223308-9 (Version None)
Quarter: 2007Q1

REPORT INFORMATION
  Report Type: 
  Country: None (occurrence: None)
  Receive Date: 20070125
  Receipt Date: 20070110
  Transmission Date: 20070707
  Serious: Yes (Hospitalization, Disabling)
  Sender: FDA-Public Use
  Company Number: 232460

PATIENT
  Age: 54 Year
  Sex: Female
  Weight: 45.2 kg

DRUGS (17)
  1. HERCEPTIN [Suspect]
     Indication: GASTRIC CANCER
     Dosage: SEE IMAGE
     Route: 042
     Dates: start: 20060809, end: 20061017
  2. CAPECITABINE (CAPECITABINE) [Suspect]
     Indication: GASTRIC CANCER
     Dosage: 2600 MG, QD, ORAL
     Route: 048
     Dates: start: 20060809, end: 20061017
  3. CAPECITABINE (CAPECITABINE) [Suspect]
  4. CISPLATIN [Suspect]
     Indication: GASTRIC CANCER
     Dosage: 80 MG/M2, INTRAVENOUS
     Route: 042
     Dates: start: 20060809, end: 20061017
  5. HYPERALIMENTATION (HYPERALIMENTATION) [Concomitant]
  6. HUMAN INSULIN (INSULIN HUMAN) [Concomitant]
  7. OMEPRAZOLE [Concomitant]
  8. SPIRONOLACTONE [Concomitant]
  9. LANSOPRAZOLE [Concomitant]
  10. POTASSIUM ASPARTATE (POTASSIUM ASPARTATE) [Concomitant]
  11. FAMOTIDINE [Concomitant]
  12. DOMPERIDONE (DOMPERIDONE) [Concomitant]
  13. NIFEDIPINE [Concomitant]
  14. HYDROCORTISONE [Concomitant]
  15. SENNOSIDE (SENNOSIDES) [Concomitant]
  16. CONCOMITANT DRUG (GENERIC COMPONENT(S) NOT KNOWN) [Concomitant]
  17. UNSPECIFIED DRUG (GENERIC COMPONENT(S) NOT KNOWN) [Concomitant]

REACTIONS (9)
  - ASCITES [None]
  - DISEASE PROGRESSION [None]
  - GASTRIC CANCER [None]
  - GRAND MAL CONVULSION [None]
  - HYPERTENSION [None]
  - NAUSEA [None]
  - REVERSIBLE POSTERIOR LEUKOENCEPHALOPATHY SYNDROME [None]
  - VISUAL ACUITY REDUCED [None]
  - VOMITING [None]
